FAERS Safety Report 7478884-2 (Version None)
Quarter: 2011Q2

REPORT INFORMATION
  Report Type: 
  Country: None (occurrence: None)
  Receive Date: 20110513
  Receipt Date: 20110510
  Transmission Date: 20111010
  Serious: Yes (Other)
  Sender: FDA-Public Use
  Company Number: US-ROCHE-776438

PATIENT
  Sex: Male

DRUGS (2)
  1. ACCUTANE [Suspect]
     Route: 065
     Dates: start: 19890101, end: 19900101
  2. ACCUTANE [Suspect]
     Dosage: SECOND CYCLE
     Route: 065
     Dates: start: 19920101, end: 19930101

REACTIONS (2)
  - IRRITABLE BOWEL SYNDROME [None]
  - COLITIS ULCERATIVE [None]
